FAERS Safety Report 15144624 (Version 1)
Quarter: 2018Q3

REPORT INFORMATION
  Report Type: Spontaneous
  Country: PL (occurrence: PL)
  Receive Date: 20180713
  Receipt Date: 20180713
  Transmission Date: 20181010
  Serious: Yes (Hospitalization, Other)
  Sender: FDA-Public Use
  Company Number: PHHY2016PL180621

PATIENT
  Age: 16 Year
  Sex: Male

DRUGS (4)
  1. OXCARBAZEPINE. [Concomitant]
     Active Substance: OXCARBAZEPINE
     Indication: PRODUCT USED FOR UNKNOWN INDICATION
     Route: 065
  2. VALPROATE SODIUM. [Suspect]
     Active Substance: VALPROATE SODIUM
     Indication: HYPOAESTHESIA
     Dosage: 1000 MG, QD
     Route: 065
  3. VALPROATE SODIUM. [Suspect]
     Active Substance: VALPROATE SODIUM
     Indication: SEIZURE
  4. VALPROATE SODIUM. [Suspect]
     Active Substance: VALPROATE SODIUM
     Indication: ELECTROENCEPHALOGRAM ABNORMAL

REACTIONS (3)
  - Pancreatitis acute [Recovered/Resolved]
  - Tachycardia [Recovering/Resolving]
  - Rash [Recovering/Resolving]
